FAERS Safety Report 4723849-4 (Version None)
Quarter: 2005Q3

REPORT INFORMATION
  Report Type: 
  Country: None (occurrence: None)
  Receive Date: 20050721
  Receipt Date: 20050630
  Transmission Date: 20060218
  Serious: Yes (Hospitalization, Other)
  Sender: FDA-Public Use
  Company Number: USA041285415

PATIENT
  Age: 64 Year
  Sex: Female

DRUGS (1)
  1. FORTEO [Suspect]
     Indication: OSTEOPOROSIS
     Dates: start: 20040101

REACTIONS (6)
  - ARTHRALGIA [None]
  - BLOOD DISORDER [None]
  - BONE DENSITY DECREASED [None]
  - DIFFICULTY IN WALKING [None]
  - IMMUNE SYSTEM DISORDER [None]
  - PAIN IN EXTREMITY [None]
